FAERS Safety Report 5171120-1 (Version None)
Quarter: 2006Q4

REPORT INFORMATION
  Report Type: 
  Country: None (occurrence: None)
  Receive Date: 20061213
  Receipt Date: 20061004
  Transmission Date: 20070319
  Serious: Yes (Life-Threatening, Other)
  Sender: FDA-Public Use
  Company Number: 2006GB01781

PATIENT
  Age: 72 Year
  Sex: Male

DRUGS (1)
  1. ZOLADEX [Suspect]
     Indication: PROSTATE CANCER
     Route: 058

REACTIONS (4)
  - DEPRESSION [None]
  - HOMICIDE [None]
  - INJURY [None]
  - SUICIDE ATTEMPT [None]
